FAERS Safety Report 9925013 (Version 13)
Quarter: 2016Q4

REPORT INFORMATION
  Report Type: Spontaneous
  Country: US (occurrence: US)
  Receive Date: 20140226
  Receipt Date: 20161207
  Transmission Date: 20170207
  Serious: Yes (Hospitalization, Disabling)
  Sender: FDA-Public Use
  Company Number: US-SA-2014SA022355

PATIENT
  Age: 52 Year
  Sex: Female
  Weight: 72.57 kg

DRUGS (28)
  1. TRIAMCINOLONE [Concomitant]
     Active Substance: TRIAMCINOLONE
  2. TYLENOL [Concomitant]
     Active Substance: ACETAMINOPHEN
  3. AVANDIA [Concomitant]
     Active Substance: ROSIGLITAZONE MALEATE
  4. IRON [Concomitant]
     Active Substance: IRON
  5. SIMVASTATIN. [Concomitant]
     Active Substance: SIMVASTATIN
     Dosage: QHS
     Route: 048
  6. ASPIRIN. [Concomitant]
     Active Substance: ASPIRIN
  7. LIPITOR [Concomitant]
     Active Substance: ATORVASTATIN CALCIUM
  8. ZOCOR [Concomitant]
     Active Substance: SIMVASTATIN
  9. AMLODIPINE BESILATE [Concomitant]
     Active Substance: AMLODIPINE BESYLATE
     Route: 048
  10. PERCOCET [Concomitant]
     Active Substance: ACETAMINOPHEN\OXYCODONE HYDROCHLORIDE
  11. PLAVIX [Suspect]
     Active Substance: CLOPIDOGREL BISULFATE
     Indication: CEREBROVASCULAR ACCIDENT
     Route: 065
     Dates: start: 20111221, end: 20120420
  12. PLAVIX [Suspect]
     Active Substance: CLOPIDOGREL BISULFATE
     Indication: STENT PLACEMENT
     Route: 065
     Dates: start: 20111221, end: 20120420
  13. PREDNISONE. [Concomitant]
     Active Substance: PREDNISONE
  14. CYCLOPENTOLATE. [Concomitant]
     Active Substance: CYCLOPENTOLATE
     Dosage: 1 % SOLUTION AS DIRECTED
  15. FLUOROMETHOLONE. [Concomitant]
     Active Substance: FLUOROMETHOLONE
     Dosage: 0.1 % SUSPENSION 1 DROP INTO AFFECTED EYE?TWICE A DAY
  16. TIMOLOL MALEATE. [Concomitant]
     Active Substance: TIMOLOL MALEATE
     Dosage: 0.25 % SOLUTION 1 DROP INTO AFFECTED EYE ONCE A DAY
  17. NOVOLOG [Concomitant]
     Active Substance: INSULIN ASPART
  18. MORPHINE [Concomitant]
     Active Substance: MORPHINE
  19. ACETAMINOPHEN PM [Concomitant]
     Active Substance: ACETAMINOPHEN\DIPHENHYDRAMINE HYDROCHLORIDE
     Route: 048
  20. GLIPIZIDE. [Concomitant]
     Active Substance: GLIPIZIDE
  21. LISINOPRIL. [Concomitant]
     Active Substance: LISINOPRIL
  22. COLACE [Concomitant]
     Active Substance: DOCUSATE SODIUM
     Route: 048
  23. CARVEDILOL. [Concomitant]
     Active Substance: CARVEDILOL
     Dosage: (TAKE 1 PO BID ON NON-DIALYSIS DAYS, AND I PO AFTER DIALYSIS IN?DIALYSIS DAYS)
     Route: 048
  24. LASIX [Concomitant]
     Active Substance: FUROSEMIDE
     Route: 048
  25. PLAVIX [Suspect]
     Active Substance: CLOPIDOGREL BISULFATE
     Indication: MYOCARDIAL INFARCTION
     Route: 065
     Dates: start: 20111221, end: 20120420
  26. FERROUS SULFATE. [Concomitant]
     Active Substance: FERROUS SULFATE
  27. BRINZOLAMIDE [Concomitant]
     Active Substance: BRINZOLAMIDE
     Dosage: 1 % SUSPENSION 1 DROP INTO AFFECTED EYE THREE TIMES A DAY
  28. COREG [Concomitant]
     Active Substance: CARVEDILOL
     Route: 048

REACTIONS (13)
  - Gastrointestinal haemorrhage [Unknown]
  - Transient ischaemic attack [Unknown]
  - Anaemia [Unknown]
  - Facial paralysis [Unknown]
  - Tachycardia [Unknown]
  - Disability [Unknown]
  - Muscle twitching [Unknown]
  - Anxiety [Unknown]
  - Hypersensitivity [Unknown]
  - Sinusitis [Unknown]
  - Facial paresis [Unknown]
  - Myocardial infarction [Unknown]
  - Gastrointestinal tract irritation [Unknown]

NARRATIVE: CASE EVENT DATE: 20120419
